FAERS Safety Report 9268124 (Version 1)
Quarter: 2013Q2

REPORT INFORMATION
  Report Type: Report from Study
  Country: US (occurrence: US)
  Receive Date: 20130502
  Receipt Date: 20130502
  Transmission Date: 20140414
  Serious: Yes (Other)
  Sender: FDA-Public Use
  Company Number: US-ALEXION-A201201548

PATIENT
  Sex: Male

DRUGS (2)
  1. SOLIRIS [Suspect]
     Indication: PAROXYSMAL NOCTURNAL HAEMOGLOBINURIA
     Dosage: UNK
     Route: 042
     Dates: start: 20111117, end: 20111117
  2. HYDROCODONE/PARACETAMOL [Suspect]
     Indication: PAIN
     Dosage: 7.5 MG - 325 MG 2 TABS, Q6 HOURS
     Route: 048

REACTIONS (7)
  - Neoplasm malignant [Unknown]
  - Surgery [Unknown]
  - Visual impairment [Unknown]
  - Vision blurred [Unknown]
  - Pain [Unknown]
  - Haemorrhage [Unknown]
  - Anaemia [Unknown]
